FAERS Safety Report 17011727 (Version 1)
Quarter: 2019Q4

REPORT INFORMATION
  Report Type: Report from Study
  Country: US (occurrence: US)
  Receive Date: 20191108
  Receipt Date: 20191108
  Transmission Date: 20200122
  Serious: Yes (Death, Hospitalization)
  Sender: FDA-Public Use
  Company Number: US-PFIZER INC-2406721

PATIENT
  Age: 41 Year
  Sex: Male
  Weight: 84.1 kg

DRUGS (3)
  1. CARVEDILOL. [Concomitant]
     Active Substance: CARVEDILOL
     Indication: HYPERTENSION
     Dosage: 6.25 MG, FREQ: 2 DAY; INTERVAL:1.
     Route: 048
     Dates: start: 20140404
  2. PHOSLO [Concomitant]
     Active Substance: CALCIUM ACETATE
     Indication: HYPERPHOSPHATAEMIA
     Dosage: 650 MG, FREQ:3 DAY; INTERVAL:1.
     Route: 048
     Dates: start: 20130802
  3. EPOETIN ALFA [Suspect]
     Active Substance: ERYTHROPOIETIN
     Indication: NEPHROGENIC ANAEMIA
     Dosage: 1500 IU, FREQ: 1 WEEK; INTERVAL:1.
     Route: 058
     Dates: start: 20140528, end: 20140611

REACTIONS (1)
  - Cerebral haemorrhage [Fatal]

NARRATIVE: CASE EVENT DATE: 20140611
